FAERS Safety Report 25157605 (Version 1)
Quarter: 2025Q2

REPORT INFORMATION
  Report Type: Report from Study
  Country: US (occurrence: US)
  Receive Date: 20250403
  Receipt Date: 20250403
  Transmission Date: 20250716
  Serious: Yes (Death, Hospitalization)
  Sender: TG THERAPEUTICS
  Company Number: US-TG THERAPEUTICS INC.-TGT004823

PATIENT

DRUGS (2)
  1. UBLITUXIMAB [Suspect]
     Active Substance: UBLITUXIMAB
     Indication: Multiple sclerosis
     Route: 042
  2. UBLITUXIMAB [Suspect]
     Active Substance: UBLITUXIMAB
     Route: 042
     Dates: start: 20250129, end: 20250129

REACTIONS (6)
  - Urosepsis [Fatal]
  - Cardiac arrest [Unknown]
  - Atrioventricular block complete [Unknown]
  - Cerebrovascular accident [Unknown]
  - Aortic surgery [Unknown]
  - Urinary tract infection [Unknown]
